FAERS Safety Report 17886051 (Version 2)
Quarter: 2020Q2

REPORT INFORMATION
  Report Type: Not Available
  Country: US (occurrence: US)
  Receive Date: 20200611
  Receipt Date: 20200625
  Transmission Date: 20200714
  Serious: Yes (Hospitalization)
  Sender: FDA-Public Use
  Company Number: US-NEUROCRINE BIOSCIENCES INC.-2020NBI01851

PATIENT
  Age: 56 Year
  Sex: Male

DRUGS (6)
  1. AMITRIPTYLINE [Concomitant]
     Active Substance: AMITRIPTYLINE
  2. BUPROPION. [Concomitant]
     Active Substance: BUPROPION
     Indication: TARDIVE DYSKINESIA
  3. INGREZZA [Suspect]
     Active Substance: VALBENAZINE
     Indication: TARDIVE DYSKINESIA
     Route: 048
     Dates: start: 20180315
  4. ROPINIROLE. [Concomitant]
     Active Substance: ROPINIROLE
  5. ABILIFY [Concomitant]
     Active Substance: ARIPIPRAZOLE
  6. LEXAPRO [Concomitant]
     Active Substance: ESCITALOPRAM OXALATE
     Indication: SCHIZOAFFECTIVE DISORDER BIPOLAR TYPE

REACTIONS (1)
  - Transient ischaemic attack [Unknown]

NARRATIVE: CASE EVENT DATE: 202005
